FAERS Safety Report 26060827 (Version 4)
Quarter: 2025Q4

REPORT INFORMATION
  Report Type: Spontaneous
  Country: EU (occurrence: EU)
  Receive Date: 20251118
  Receipt Date: 20251124
  Transmission Date: 20260117
  Serious: Yes (Hospitalization, Other)
  Sender: PFIZER
  Company Number: None

PATIENT
  Age: 30 Year
  Sex: Female
  Weight: 60 kg

DRUGS (8)
  1. ADCETRIS [Suspect]
     Active Substance: BRENTUXIMAB VEDOTIN
     Indication: Hodgkin^s disease
     Dosage: 115 MG, TOTAL
     Route: 042
     Dates: start: 20250923, end: 20250923
  2. CARBOPLATIN [Suspect]
     Active Substance: CARBOPLATIN
     Indication: Hodgkin^s disease
     Dosage: 570 MILLIGRAM, QD
     Route: 042
     Dates: start: 20250924, end: 20250926
  3. CYTARABINE [Suspect]
     Active Substance: CYTARABINE
     Indication: Hodgkin^s disease
     Dosage: 3400 MILLIGRAM, QD
     Route: 042
     Dates: start: 20250924, end: 20250925
  4. FILGRASTIM [Suspect]
     Active Substance: FILGRASTIM
     Indication: Chemotherapy side effect prophylaxis
     Dosage: 30X10*6 IU 1X/DAY
     Route: 042
     Dates: start: 20250929, end: 20251003
  5. DEXAMETHASONE [Suspect]
     Active Substance: DEXAMETHASONE
     Indication: Hodgkin^s disease
     Dosage: 40 MILLIGRAM, QD
     Route: 042
     Dates: start: 20250923, end: 20250926
  6. AMOXICILLIN [Suspect]
     Active Substance: AMOXICILLIN
     Indication: Sepsis
     Dosage: 1 DF, CYCLIC
     Route: 048
     Dates: start: 20251003, end: 20251005
  7. CLAVULANIC ACID [Suspect]
     Active Substance: CLAVULANIC ACID
     Indication: Sepsis
     Dosage: 1 DF, CYCLIC
     Route: 048
     Dates: start: 20251003, end: 20251005
  8. CIPROFLOXACIN [Suspect]
     Active Substance: CIPROFLOXACIN
     Indication: Sepsis
     Dosage: 1 DF, CYCLIC
     Route: 048
     Dates: start: 20251003, end: 20251005

REACTIONS (3)
  - Hepatic cytolysis [Recovering/Resolving]
  - Rash scarlatiniform [Recovering/Resolving]
  - Off label use [Unknown]

NARRATIVE: CASE EVENT DATE: 20250924
